FAERS Safety Report 7230601-7 (Version None)
Quarter: 2011Q1

REPORT INFORMATION
  Report Type: 
  Country: None (occurrence: None)
  Receive Date: 20110118
  Receipt Date: 20110111
  Transmission Date: 20110831
  Serious: Yes (Hospitalization)
  Sender: FDA-Public Use
  Company Number: PHFR2011GB00704

PATIENT
  Age: 92 Year
  Sex: Female

DRUGS (4)
  1. ATENOLOL [Concomitant]
     Indication: ANGINA PECTORIS
     Dosage: 50 MG, QD
     Route: 048
  2. VALSARTAN [Concomitant]
     Indication: CARDIAC FAILURE CONGESTIVE
     Dosage: 40 MG, QD
     Route: 048
     Dates: start: 20090101
  3. LETROZOLE [Suspect]
     Indication: BREAST CANCER
     Dosage: 2.5 MG, UNK
     Route: 048
     Dates: start: 20100801
  4. OMEPRAZOLE [Concomitant]
     Indication: DYSPEPSIA
     Dosage: 40 MG, QD
     Route: 048

REACTIONS (2)
  - SERUM FERRITIN DECREASED [None]
  - PANCYTOPENIA [None]
